FAERS Safety Report 7602727-7 (Version None)
Quarter: 2011Q2

REPORT INFORMATION
  Report Type: 
  Country: None (occurrence: None)
  Receive Date: 20110630
  Receipt Date: 20110624
  Transmission Date: 20111010
  Serious: Yes (Hospitalization)
  Sender: FDA-Public Use
  Company Number: 2011060259

PATIENT
  Age: 88 Year
  Sex: Male

DRUGS (1)
  1. MUSE URETHRAL SUPPOSITORY (ALPROSTADIL) [Suspect]
     Indication: ERECTILE DYSFUNCTION
     Dosage: 1000 MCG, AS REQUIRED) URETHRAL
     Route: 066
     Dates: start: 19960101

REACTIONS (1)
  - TRANSIENT ISCHAEMIC ATTACK [None]
